FAERS Safety Report 25023609 (Version 1)
Quarter: 2025Q1

REPORT INFORMATION
  Report Type: Spontaneous
  Country: GB (occurrence: GB)
  Receive Date: 20250228
  Receipt Date: 20250228
  Transmission Date: 20250409
  Serious: Yes (Other)
  Sender: MYLAN
  Company Number: GB-MHRA-TPP52357993C25878964YC1740064283397

PATIENT
  Age: 91 Year
  Sex: Female
  Weight: 86 kg

DRUGS (29)
  1. EPLERENONE [Interacting]
     Active Substance: EPLERENONE
     Indication: Cardiac failure
     Dosage: 1 DOSAGE FORM, QD (ONE TO BE TAKEN EACH DAY FOR HEART FAILURE)
     Dates: start: 20241128, end: 20250219
  2. RAMIPRIL [Interacting]
     Active Substance: RAMIPRIL
     Indication: Ill-defined disorder
  3. DICLOFENAC SODIUM [Concomitant]
     Active Substance: DICLOFENAC SODIUM
     Indication: Ill-defined disorder
     Dosage: 1 DOSAGE FORM, TID (ONE THREE TIMES A DAY AS REQUIRED)
     Dates: start: 20000721, end: 20250219
  4. VOLTAROL [Concomitant]
     Active Substance: DICLOFENAC SODIUM
     Indication: Ill-defined disorder
     Dates: start: 20040202, end: 20250219
  5. CODEINE PHOSPHATE [Concomitant]
     Active Substance: CODEINE PHOSPHATE
     Indication: Ill-defined disorder
     Dosage: UNK, QID (ONE OR TWO TO BE TAKEN FOUR TIMES DAILY AS REQUIRED)
     Dates: start: 20040401, end: 20250219
  6. GLICLAZIDE [Concomitant]
     Active Substance: GLICLAZIDE
     Indication: Ill-defined disorder
     Dosage: 1 DOSAGE FORM, BID (ONE TO BE TAKEN TWICE A DAY)
     Dates: start: 20050707, end: 20250219
  7. GLUCOPHAGE [Concomitant]
     Active Substance: METFORMIN HYDROCHLORIDE
     Indication: Ill-defined disorder
     Dosage: 1 DOSAGE FORM, QD (ONE TO BE TAKEN DAILY )
     Dates: start: 20050707, end: 20250219
  8. NITROGLYCERIN [Concomitant]
     Active Substance: NITROGLYCERIN
     Indication: Ill-defined disorder
     Dates: start: 20070302, end: 20250219
  9. CLOPIDOGREL [Concomitant]
     Active Substance: CLOPIDOGREL BISULFATE
     Indication: Ill-defined disorder
     Dosage: 1 DOSAGE FORM, QD (ONE TO BE TAKEN DAILY)
     Dates: start: 20080912, end: 20250219
  10. ACETAMINOPHEN [Concomitant]
     Active Substance: ACETAMINOPHEN
     Indication: Ill-defined disorder
     Dates: start: 20151216, end: 20250219
  11. POLYETHYLENE GLYCOL 3350\POTASSIUM CHLORIDE\SODIUM BICARBONATE\SODIUM [Concomitant]
     Active Substance: POLYETHYLENE GLYCOL 3350\POTASSIUM CHLORIDE\SODIUM BICARBONATE\SODIUM CHLORIDE
     Indication: Ill-defined disorder
     Dates: start: 20171228, end: 20250219
  12. TRELEGY ELLIPTA [Concomitant]
     Active Substance: FLUTICASONE FUROATE\UMECLIDINIUM BROMIDE\VILANTEROL TRIFENATATE
     Indication: Ill-defined disorder
     Dosage: 1 DOSAGE FORM, QD (1 ONCE DAILY)
     Dates: start: 20190221, end: 20250219
  13. VICTOZA [Concomitant]
     Active Substance: LIRAGLUTIDE
     Indication: Ill-defined disorder
     Dosage: 1.2 MILLIGRAM, QD (0.2 ML)
     Dates: start: 20190620, end: 20250219
  14. CYANOCOBALAMIN [Concomitant]
     Active Substance: CYANOCOBALAMIN
     Indication: Ill-defined disorder
     Dosage: 1 DOSAGE FORM, QD (1 DAILY TO PREVENT B12 DEFICIENCY FOR 2 MONTHS)
     Dates: start: 20211212, end: 20250219
  15. CYANOCOBALAMIN [Concomitant]
     Active Substance: CYANOCOBALAMIN
     Indication: Vitamin B12 deficiency
  16. ALBUTEROL [Concomitant]
     Active Substance: ALBUTEROL
     Indication: Ill-defined disorder
  17. CARBOCYSTEINE [Concomitant]
     Active Substance: CARBOCYSTEINE
     Indication: Ill-defined disorder
     Dosage: 2 DOSAGE FORM, BID (TWO TO BE TAKEN TWICE A DAY)
     Dates: start: 20221111, end: 20250219
  18. CARBOCYSTEINE [Concomitant]
     Active Substance: CARBOCYSTEINE
     Indication: Catarrh
  19. HYPROMELLOSES [Concomitant]
     Active Substance: HYPROMELLOSES
     Indication: Ill-defined disorder
  20. INSULIN GLARGINE [Concomitant]
     Active Substance: INSULIN GLARGINE
     Indication: Ill-defined disorder
  21. LOSARTAN [Concomitant]
     Active Substance: LOSARTAN
     Indication: Ill-defined disorder
     Dosage: 1 DOSAGE FORM, QD (ONE TO BE TAKEN EACH DAY FOR BLOOD PRESSURE )
     Dates: start: 20230906, end: 20250219
  22. LOSARTAN [Concomitant]
     Active Substance: LOSARTAN
     Indication: Blood pressure abnormal
  23. AMITRIPTYLINE HYDROCHLORIDE [Concomitant]
     Active Substance: AMITRIPTYLINE HYDROCHLORIDE
     Indication: Ill-defined disorder
     Dosage: 1 DOSAGE FORM, PM (ONE TO BE TAKEN AT NIGHT TO HELP SLEEP)
     Dates: start: 20231204, end: 20250219
  24. AMITRIPTYLINE HYDROCHLORIDE [Concomitant]
     Active Substance: AMITRIPTYLINE HYDROCHLORIDE
     Indication: Insomnia
  25. APIXABAN [Concomitant]
     Active Substance: APIXABAN
     Indication: Ill-defined disorder
     Dosage: 1 DOSAGE FORM, BID (ONE TO BE TAKEN TWICE A DAY)
     Dates: start: 20240614, end: 20250219
  26. BISOPROLOL [Concomitant]
     Active Substance: BISOPROLOL
     Indication: Ill-defined disorder
     Dosage: 1 DOSAGE FORM, AM  (ONE TO BE TAKEN IN THE MORNING)
     Dates: start: 20240614, end: 20250219
  27. LANSOPRAZOLE [Concomitant]
     Active Substance: LANSOPRAZOLE
     Indication: Ill-defined disorder
     Dosage: 1 DOSAGE FORM, AM (ONE TO BE TAKEN EACH MORNING)
     Dates: start: 20240614, end: 20250219
  28. DAPAGLIFLOZIN [Concomitant]
     Active Substance: DAPAGLIFLOZIN
     Indication: Ill-defined disorder
     Dosage: 1 DOSAGE FORM, QD (ONE TO BE TAKEN DAILY)
     Dates: start: 20240704, end: 20250219
  29. FUROSEMIDE [Concomitant]
     Active Substance: FUROSEMIDE
     Indication: Ill-defined disorder
     Dosage: 2 DOSAGE FORM, AM (TAKE TWO TABLETS IN THE MORNING)
     Dates: start: 20241015, end: 20250219

REACTIONS (1)
  - Drug interaction [Unknown]
